FAERS Safety Report 24294260 (Version 1)
Quarter: 2024Q3

REPORT INFORMATION
  Report Type: Spontaneous
  Country: US (occurrence: US)
  Receive Date: 20240906
  Receipt Date: 20240906
  Transmission Date: 20241017
  Serious: No
  Sender: DOMPE FARMACEUTICI
  Company Number: US-FARMAPROD-202406-2146

PATIENT
  Sex: Male

DRUGS (21)
  1. OXERVATE [Suspect]
     Active Substance: CENEGERMIN-BKBJ
     Indication: Neurotrophic keratopathy
     Route: 047
     Dates: start: 20240531
  2. OXERVATE [Suspect]
     Active Substance: CENEGERMIN-BKBJ
  3. CYCLOGYL [Concomitant]
     Active Substance: CYCLOPENTOLATE HYDROCHLORIDE
  4. TRELEGY ELLIPTA [Concomitant]
     Active Substance: FLUTICASONE FUROATE\UMECLIDINIUM BROMIDE\VILANTEROL TRIFENATATE
     Dosage: 100-62.5 BLISTER, WITH INHALATION DEVICE
  5. JARDIANCE [Concomitant]
     Active Substance: EMPAGLIFLOZIN
  6. ATORVASTATIN CALCIUM [Concomitant]
     Active Substance: ATORVASTATIN CALCIUM
  7. TAMSULOSIN HYDROCHLORIDE [Concomitant]
     Active Substance: TAMSULOSIN HYDROCHLORIDE
  8. POTASSIUM CHLORIDE [Concomitant]
     Active Substance: POTASSIUM CHLORIDE
  9. VITAMINS [Concomitant]
     Active Substance: VITAMINS
  10. METFORMIN HYDROCHLORIDE [Concomitant]
     Active Substance: METFORMIN HYDROCHLORIDE
     Dosage: GASTRIC
  11. LISINOPRIL [Concomitant]
     Active Substance: LISINOPRIL
  12. LEVOCETIRIZINE DIHYDROCHLORIDE [Concomitant]
     Active Substance: LEVOCETIRIZINE DIHYDROCHLORIDE
  13. LANTUS SOLOSTAR [Concomitant]
     Active Substance: INSULIN GLARGINE
  14. GABAPENTIN [Concomitant]
     Active Substance: GABAPENTIN
  15. FUROSEMIDE [Concomitant]
     Active Substance: FUROSEMIDE
  16. CARVEDILOL [Concomitant]
     Active Substance: CARVEDILOL
  17. COMBIGAN [Concomitant]
     Active Substance: BRIMONIDINE TARTRATE\TIMOLOL MALEATE
     Dosage: 0.2%-0.5%
  18. ATROPINE SULFATE [Concomitant]
     Active Substance: ATROPINE SULFATE
  19. AMLODIPINE BESYLATE [Concomitant]
     Active Substance: AMLODIPINE BESYLATE
  20. LUMIGAN [Concomitant]
     Active Substance: BIMATOPROST
  21. ELIQUIS [Concomitant]
     Active Substance: APIXABAN

REACTIONS (5)
  - Blood urine present [Unknown]
  - Dry eye [Not Recovered/Not Resolved]
  - Eye irritation [Unknown]
  - Eye pain [Unknown]
  - Foreign body sensation in eyes [Unknown]
